FAERS Safety Report 9831114 (Version 1)
Quarter: 2014Q1

REPORT INFORMATION
  Report Type: Spontaneous
  Country: AU (occurrence: AU)
  Receive Date: 20140121
  Receipt Date: 20140121
  Transmission Date: 20141002
  Serious: Yes (Death)
  Sender: FDA-Public Use
  Company Number: AU-ROCHE-1331770

PATIENT
  Age: 61 Year
  Sex: Female

DRUGS (9)
  1. DIAZEPAM [Suspect]
     Indication: PRODUCT USED FOR UNKNOWN INDICATION
     Route: 065
  2. AMITRIPTYLINE [Interacting]
     Indication: PRODUCT USED FOR UNKNOWN INDICATION
     Route: 065
  3. CARBAMAZEPINE [Interacting]
     Indication: PRODUCT USED FOR UNKNOWN INDICATION
     Route: 065
  4. CODEINE [Interacting]
     Indication: PRODUCT USED FOR UNKNOWN INDICATION
     Route: 065
  5. CYMBALTA [Interacting]
     Indication: PRODUCT USED FOR UNKNOWN INDICATION
     Dosage: DOSE UNSPEC
     Route: 065
  6. PROPOXYPHENE HCL AND ACETAMINOPHEN [Interacting]
     Indication: PRODUCT USED FOR UNKNOWN INDICATION
     Route: 065
  7. OXYCODON [Interacting]
     Indication: PRODUCT USED FOR UNKNOWN INDICATION
     Route: 065
  8. PARACETAMOL [Interacting]
     Indication: PRODUCT USED FOR UNKNOWN INDICATION
     Route: 065
  9. ZOPICLONE [Interacting]
     Indication: PRODUCT USED FOR UNKNOWN INDICATION
     Route: 065

REACTIONS (8)
  - Bronchopneumonia [Fatal]
  - Drug interaction [Fatal]
  - Cardiomegaly [Fatal]
  - Toxicity to various agents [Fatal]
  - Arteriosclerosis coronary artery [Fatal]
  - Nephritis [Fatal]
  - Thyroid adenoma [Fatal]
  - Obesity [Fatal]
